FAERS Safety Report 9516403 (Version 2)
Quarter: 2013Q3

REPORT INFORMATION
  Report Type: Report from Study
  Country: US (occurrence: US)
  Receive Date: 20130911
  Receipt Date: 20130924
  Transmission Date: 20140515
  Serious: Yes (Hospitalization, Disabling)
  Sender: FDA-Public Use
  Company Number: US-ACTELION-A-NJ2013-88179

PATIENT
  Age: 84 Year
  Sex: Female

DRUGS (14)
  1. TRACLEER [Suspect]
     Indication: PULMONARY ARTERIAL HYPERTENSION
     Dosage: 125 MG, BID
     Route: 048
     Dates: start: 2010
  2. CARVEDILOL [Concomitant]
     Dosage: 6.25 MG, BID
     Dates: start: 2012
  3. ZANTAC [Concomitant]
     Dosage: 150 MG, QD
     Dates: start: 2005
  4. SPIRONOLACTONE [Concomitant]
     Dosage: 50 MG, QD
     Dates: start: 2006
  5. SYNTHROID [Concomitant]
     Dosage: 50 MCG, QD
     Dates: start: 2006
  6. VITAMIN D [Concomitant]
     Dosage: 2000 U, WEEKLY
     Dates: start: 2010
  7. NORVASC [Concomitant]
     Dosage: 10 MG, QD
     Dates: start: 2010
  8. DIOVAN [Concomitant]
     Dosage: 160 MG, BID
     Dates: start: 2006
  9. NEXIUM [Concomitant]
     Dosage: 40 MG, BID
     Dates: start: 2006
  10. FOSAMAX [Concomitant]
     Dosage: 70 MG, WEEKLY
     Dates: start: 2003
  11. TUMS [Concomitant]
     Dosage: UNK, TID
     Dates: start: 2008
  12. TYLENOL [Concomitant]
     Dosage: 1000 MG, BID
     Dates: start: 2006
  13. HYDROCHLOROTHIAZIDE [Concomitant]
     Dosage: 12.5 MG, QD
     Dates: start: 201301
  14. ASPIRIN [Concomitant]
     Dosage: 81 MG, QD
     Dates: start: 2003

REACTIONS (8)
  - Arthritis infective [Not Recovered/Not Resolved]
  - Abasia [Not Recovered/Not Resolved]
  - Pallor [Recovered/Resolved]
  - Myocardial infarction [Not Recovered/Not Resolved]
  - Urinary tract infection [Not Recovered/Not Resolved]
  - Pulmonary arterial hypertension [Recovered/Resolved]
  - Chest pain [Recovered/Resolved]
  - Fatigue [Recovered/Resolved]
